FAERS Safety Report 23521250 (Version 1)
Quarter: 2024Q1

REPORT INFORMATION
  Report Type: Spontaneous
  Country: FR (occurrence: FR)
  Receive Date: 20240214
  Receipt Date: 20240214
  Transmission Date: 20240409
  Serious: Yes (Hospitalization, Other)
  Sender: FDA-Public Use
  Company Number: FR-AFSSAPS-AM2024000066

PATIENT
  Age: 4 Year
  Sex: Female
  Weight: 15.3 kg

DRUGS (5)
  1. IRINOTECAN [Suspect]
     Active Substance: IRINOTECAN
     Indication: Chemotherapy
     Dosage: 80 MILLIGRAM, CYCLICAL (16MG FROM D1 TO D5)
     Route: 042
     Dates: start: 20231106
  2. BEVACIZUMAB [Suspect]
     Active Substance: BEVACIZUMAB
     Indication: Chemotherapy
     Dosage: 225 MILLIGRAM, CYCLICAL (J1)
     Route: 042
     Dates: start: 20231106
  3. TEMOZOLOMIDE [Suspect]
     Active Substance: TEMOZOLOMIDE
     Indication: Chemotherapy
     Dosage: 162 MILLIGRAM, CYCLICAL (33MG FROM D1 TO D5)
     Route: 042
     Dates: start: 20231106
  4. VINCRISTINE [Suspect]
     Active Substance: VINCRISTINE
     Indication: Chemotherapy
     Dosage: 1.98 MILLIGRAM, CYCLICAL (0.99MG ON D1 AND D8)
     Route: 042
     Dates: start: 20231106
  5. ENALAPRIL [Concomitant]
     Active Substance: ENALAPRIL
     Indication: Product used for unknown indication
     Dosage: UNK
     Route: 065

REACTIONS (1)
  - Renal-limited thrombotic microangiopathy [Not Recovered/Not Resolved]

NARRATIVE: CASE EVENT DATE: 20231228
